FAERS Safety Report 26102094 (Version 2)
Quarter: 2025Q4

REPORT INFORMATION
  Report Type: Spontaneous
  Country: US (occurrence: US)
  Receive Date: 20251128
  Receipt Date: 20251219
  Transmission Date: 20260118
  Serious: Yes (Other)
  Sender: KEDRION
  Company Number: US-KEDRION-010279

PATIENT
  Age: 37 Year
  Sex: Female

DRUGS (1)
  1. RHOGAM [Suspect]
     Active Substance: HUMAN RHO(D) IMMUNE GLOBULIN
     Indication: Rhesus antigen negative
     Route: 065
     Dates: start: 20250701

REACTIONS (3)
  - Postpartum haemorrhage [Recovered/Resolved]
  - Medication error [Unknown]
  - Maternal exposure during pregnancy [Unknown]

NARRATIVE: CASE EVENT DATE: 20250701
